FAERS Safety Report 8081496-3 (Version None)
Quarter: 2012Q1

REPORT INFORMATION
  Report Type: 
  Country: None (occurrence: None)
  Receive Date: 20120130
  Receipt Date: 20120124
  Transmission Date: 20120608
  Serious: Yes (Other)
  Sender: FDA-Public Use
  Company Number: PHHY2011BE90281

PATIENT
  Age: 74 Year
  Sex: Female

DRUGS (9)
  1. SUPRADYN [Concomitant]
     Indication: VITAMIN SUPPLEMENTATION
  2. LOSARTAN POTASSIUM [Concomitant]
     Indication: HYPERTENSION
  3. GLEEVEC [Suspect]
     Dosage: 100 MG, BID
     Route: 048
     Dates: start: 20110901
  4. TRAMADOL HCL [Concomitant]
     Indication: PAIN
  5. LEVOTHYROXINE SODIUM [Concomitant]
     Indication: HYPOTHYROIDISM
     Dosage: 75 UG, UNK
  6. GLEEVEC [Suspect]
     Indication: GASTROINTESTINAL STROMAL TUMOUR
     Dosage: 400 MG, DAILY
     Route: 048
     Dates: start: 20110615, end: 20110811
  7. GLEEVEC [Suspect]
     Dosage: 4 X 100 MG
  8. XANAX [Concomitant]
     Indication: ANXIETY
     Dosage: 0.75 UKN, UNK
     Route: 048
  9. MOXONIDINE [Concomitant]
     Indication: HYPERTENSION
     Dosage: 0.4 UKN, UNK

REACTIONS (12)
  - HYPERTENSION [None]
  - HYPOTENSION [None]
  - VISUAL IMPAIRMENT [None]
  - CONJUNCTIVAL HAEMORRHAGE [None]
  - VOMITING [None]
  - ASTHENIA [None]
  - HEADACHE [None]
  - CONJUNCTIVAL VASCULAR DISORDER [None]
  - ABDOMINAL PAIN [None]
  - DIZZINESS [None]
  - VERTIGO [None]
  - DRUG INTOLERANCE [None]
